FAERS Safety Report 17157502 (Version 1)
Quarter: 2019Q4

REPORT INFORMATION
  Report Type: Spontaneous
  Country: US (occurrence: US)
  Receive Date: 20191121
  Receipt Date: 20191121
  Transmission Date: 20200122
  Serious: Yes (Other)
  Sender: FDA-Public Use
  Company Number: None

PATIENT
  Age: 70 Year
  Sex: Male

DRUGS (15)
  1. ORENITRAM [Concomitant]
     Active Substance: TREPROSTINIL
  2. TRAZODONE [Concomitant]
     Active Substance: TRAZODONE HYDROCHLORIDE
  3. SILDENAFIL. [Concomitant]
     Active Substance: SILDENAFIL
  4. WARFARIN [Concomitant]
     Active Substance: WARFARIN
  5. MELATONIN [Concomitant]
     Active Substance: MELATONIN
  6. TRIAMCINOLONE TOP CREAM [Concomitant]
  7. BUPROPION. [Concomitant]
     Active Substance: BUPROPION
  8. FUROSEMIDE. [Concomitant]
     Active Substance: FUROSEMIDE
  9. PRAVASTATIN. [Concomitant]
     Active Substance: PRAVASTATIN
  10. FLONASE [Concomitant]
     Active Substance: FLUTICASONE PROPIONATE
  11. COLACE [Concomitant]
     Active Substance: DOCUSATE SODIUM
  12. AMBRISENTAN 10MG TABLETS 30/BO: 10MG [Suspect]
     Active Substance: AMBRISENTAN
     Indication: PULMONARY ARTERIAL HYPERTENSION
     Route: 048
     Dates: start: 201110, end: 201911
  13. ALLOPURINOL. [Concomitant]
     Active Substance: ALLOPURINOL
  14. LORATADINE. [Concomitant]
     Active Substance: LORATADINE
  15. GLIPIZIDE. [Concomitant]
     Active Substance: GLIPIZIDE

REACTIONS (4)
  - Cardiac valve disease [None]
  - Left ventricular end-diastolic pressure increased [None]
  - Diastolic dysfunction [None]
  - Therapy cessation [None]

NARRATIVE: CASE EVENT DATE: 20191120
